FAERS Safety Report 6910248-X (Version None)
Quarter: 2010Q3

REPORT INFORMATION
  Report Type: 
  Country: None (occurrence: None)
  Receive Date: 20100806
  Receipt Date: 20100727
  Transmission Date: 20110219
  Serious: Yes (Death, Disabling, Other)
  Sender: FDA-Public Use
  Company Number: BE-GENZYME-CLOF-1000981

PATIENT
  Sex: Female
  Weight: 54 kg

DRUGS (13)
  1. EVOLTRA [Suspect]
     Indication: ACUTE MYELOID LEUKAEMIA
     Dosage: 40 MG/M2, QDX5
     Route: 042
     Dates: start: 20100426, end: 20100430
  2. FLUDARA [Suspect]
     Indication: ACUTE MYELOID LEUKAEMIA
     Dosage: 30 MG/M2, UNK
     Route: 042
     Dates: start: 20100508, end: 20100511
  3. CYTARABINE [Suspect]
     Indication: ACUTE MYELOID LEUKAEMIA
     Dosage: 1 G/M2, UNK
     Route: 065
     Dates: start: 20100423, end: 20100429
  4. BUSULFAN [Suspect]
     Indication: ACUTE MYELOID LEUKAEMIA
     Dosage: 27 MG, UNK
     Route: 048
     Dates: start: 20100509, end: 20100510
  5. ORGAMETRIL [Concomitant]
     Indication: PRODUCT USED FOR UNKNOWN INDICATION
     Route: 065
  6. XANAX [Concomitant]
     Indication: PRODUCT USED FOR UNKNOWN INDICATION
     Dosage: 1.5 MG, UNK
     Route: 065
  7. ZOLPIDEM [Concomitant]
     Indication: PRODUCT USED FOR UNKNOWN INDICATION
     Route: 065
  8. OMEPRAZOLE [Concomitant]
     Indication: PRODUCT USED FOR UNKNOWN INDICATION
     Route: 065
  9. NOXAFIL [Concomitant]
     Indication: PRODUCT USED FOR UNKNOWN INDICATION
     Dosage: 5 ML, TID
     Route: 065
  10. SYNGEL [Concomitant]
     Indication: PRODUCT USED FOR UNKNOWN INDICATION
     Route: 065
  11. HYDREA [Concomitant]
     Indication: PRODUCT USED FOR UNKNOWN INDICATION
     Route: 065
  12. AMSACRINE [Concomitant]
     Indication: ACUTE MYELOID LEUKAEMIA
     Dosage: UNK
     Route: 065
     Dates: start: 20100301, end: 20100301
  13. ARA-C [Concomitant]
     Indication: ACUTE MYELOID LEUKAEMIA
     Dosage: UNK
     Route: 065
     Dates: start: 20100301, end: 20100301

REACTIONS (45)
  - ANAEMIA [None]
  - BONE MARROW FAILURE [None]
  - CHOLESTASIS [None]
  - DECREASED APPETITE [None]
  - DEPRESSED LEVEL OF CONSCIOUSNESS [None]
  - DEPRESSION [None]
  - DIARRHOEA [None]
  - DYSPNOEA [None]
  - ENTEROBACTER BACTERAEMIA [None]
  - ENTEROBACTER TEST POSITIVE [None]
  - ENTEROCOCCAL BACTERAEMIA [None]
  - ENTEROCOCCUS TEST POSITIVE [None]
  - FEBRILE NEUTROPENIA [None]
  - FLUID OVERLOAD [None]
  - GUILLAIN-BARRE SYNDROME [None]
  - HEPATIC ENCEPHALOPATHY [None]
  - HEPATITIS TOXIC [None]
  - HEPATOMEGALY [None]
  - HICCUPS [None]
  - HYPERBILIRUBINAEMIA [None]
  - HYPERTHERMIA [None]
  - HYPOALBUMINAEMIA [None]
  - HYPONATRAEMIA [None]
  - HYPOPROTEINAEMIA [None]
  - HYPOVENTILATION [None]
  - JAUNDICE [None]
  - MITRAL VALVE INCOMPETENCE [None]
  - NAUSEA [None]
  - ORAL HERPES [None]
  - PAIN [None]
  - PALMAR-PLANTAR ERYTHRODYSAESTHESIA SYNDROME [None]
  - PARAPARESIS [None]
  - PERICARDIAL EFFUSION [None]
  - PERICARDIAL RUB [None]
  - PERIPHERAL MOTOR NEUROPATHY [None]
  - PERIPHERAL SENSORY NEUROPATHY [None]
  - PYREXIA [None]
  - RECTAL HAEMORRHAGE [None]
  - RENAL FAILURE [None]
  - RESPIRATORY DISORDER [None]
  - SEPTIC SHOCK [None]
  - STAPHYLOCOCCAL SEPSIS [None]
  - THROMBOCYTOPENIA [None]
  - VASCULITIS [None]
  - VOMITING [None]
